FAERS Safety Report 6656243-X (Version None)
Quarter: 2010Q1

REPORT INFORMATION
  Report Type: 
  Country: None (occurrence: None)
  Receive Date: 20100326
  Receipt Date: 20100326
  Transmission Date: 20100710
  Serious: Yes (Life-Threatening, Hospitalization)
  Sender: FDA-Public Use
  Company Number: None

PATIENT
  Age: 62 Year
  Sex: Female
  Weight: 41.46 kg

DRUGS (1)
  1. CIPRO [Suspect]
     Indication: RESPIRATORY DISORDER
     Dosage: 500 MG TWICE A DAY PO
     Route: 048
     Dates: start: 20100303, end: 20100316

REACTIONS (5)
  - ANURIA [None]
  - BLOOD CREATININE INCREASED [None]
  - STEVENS-JOHNSON SYNDROME [None]
  - TOXIC EPIDERMAL NECROLYSIS [None]
  - WHITE BLOOD CELL COUNT DECREASED [None]
